FAERS Safety Report 21154975 (Version 1)
Quarter: 2022Q3

REPORT INFORMATION
  Report Type: Spontaneous
  Country: US (occurrence: None)
  Receive Date: 20220730
  Receipt Date: 20220730
  Transmission Date: 20221027
  Serious: Yes (Disabling, Other)
  Sender: FDA-Public Use
  Company Number: None

PATIENT
  Age: 9 Month
  Sex: Female
  Weight: 9 kg

DRUGS (3)
  1. BANANA BOAT (AVOBENZONE\HOMOSALATE\OCTOCRYLENE) [Suspect]
     Active Substance: AVOBENZONE\HOMOSALATE\OCTOCRYLENE
     Indication: Prophylaxis against solar radiation
     Route: 061
     Dates: start: 20220726, end: 20220726
  2. UNSPECIFIED INGREDIENT [Concomitant]
     Active Substance: UNSPECIFIED INGREDIENT
  3. CORTISONE [Concomitant]
     Active Substance: CORTISONE

REACTIONS (5)
  - Dermatitis contact [None]
  - Urticaria [None]
  - Blister [None]
  - Dermatitis acneiform [None]
  - Product formulation issue [None]

NARRATIVE: CASE EVENT DATE: 20220727
